FAERS Safety Report 8636851 (Version 2)
Quarter: 2013Q2

REPORT INFORMATION
  Report Type: Spontaneous
  Country: US (occurrence: US)
  Receive Date: 20120626
  Receipt Date: 20130419
  Transmission Date: 20140414
  Serious: Yes (Other)
  Sender: FDA-Public Use
  Company Number: CHPA2012US012707

PATIENT
  Age: 90 Year
  Sex: Female

DRUGS (8)
  1. SLOW FE BROWN [Suspect]
     Indication: BLOOD IRON DECREASED
     Dosage: UNK, UNK
  2. SLOW FE BROWN [Suspect]
     Dosage: 1 DF, PER DAY
     Route: 048
     Dates: start: 201203, end: 201203
  3. FUROSEMIDE [Concomitant]
     Indication: OEDEMA PERIPHERAL
     Dosage: UNK, UNK
  4. BISOPROLOL [Concomitant]
     Indication: HYPERTENSION
     Dosage: UNK, UNK
  5. VITAMIN B6 [Concomitant]
     Dosage: UNK, UNK
  6. VITAMIN B12 [Concomitant]
     Dosage: UNK, PRN
  7. VITAMIN D [Concomitant]
     Dosage: UNK, PRN
  8. ONE A DAY ESSENTIAL [Concomitant]
     Dosage: UNK, UNK

REACTIONS (1)
  - Constipation [Recovered/Resolved]
